FAERS Safety Report 4763833-8 (Version None)
Quarter: 2005Q3

REPORT INFORMATION
  Report Type: 
  Country: None (occurrence: None)
  Receive Date: 20050901
  Receipt Date: 20050609
  Transmission Date: 20060218
  Serious: No
  Sender: FDA-Public Use
  Company Number: 200510837BWH

PATIENT
  Age: 43 Year
  Sex: Male
  Weight: 99.7913 kg

DRUGS (1)
  1. LEVITRA [Suspect]
     Dosage: 5 MG, PRN, ORAL
     Route: 048
     Dates: start: 20050401

REACTIONS (7)
  - CHILLS [None]
  - DIARRHOEA [None]
  - FEELING HOT [None]
  - FLUSHING [None]
  - PARAESTHESIA [None]
  - STOMACH DISCOMFORT [None]
  - URTICARIA [None]
